FAERS Safety Report 9192887 (Version 1)
Quarter: 2013Q1

REPORT INFORMATION
  Report Type: Spontaneous
  Country: US (occurrence: US)
  Receive Date: 20130327
  Receipt Date: 20130327
  Transmission Date: 20140127
  Serious: Yes (Other)
  Sender: FDA-Public Use
  Company Number: US-BRISTOL-MYERS SQUIBB COMPANY-18695569

PATIENT
  Age: 65 Year
  Sex: Female
  Weight: 68.03 kg

DRUGS (3)
  1. ORENCIA [Suspect]
     Dosage: LAST INF:28FEB13
     Route: 042
  2. CYMBALTA [Concomitant]
  3. METHOTREXATE [Concomitant]

REACTIONS (1)
  - Colitis ulcerative [Unknown]
